FAERS Safety Report 7961367-0 (Version None)
Quarter: 2011Q4

REPORT INFORMATION
  Report Type: 
  Country: None (occurrence: None)
  Receive Date: 20111207
  Receipt Date: 20111125
  Transmission Date: 20120403
  Serious: Yes (Hospitalization, Other)
  Sender: FDA-Public Use
  Company Number: FR-ELI_LILLY_AND_COMPANY-FR201111007818

PATIENT
  Sex: Female

DRUGS (8)
  1. ALIMTA [Suspect]
     Dosage: UNK UNK, EVERY THREE WEEKS
     Route: 042
     Dates: start: 20110615, end: 20110907
  2. SPIRIVA [Concomitant]
  3. ALIMTA [Suspect]
     Indication: BRONCHIAL CARCINOMA
     Dosage: UNK
     Route: 042
     Dates: start: 20100801, end: 20101101
  4. CISPLATIN [Concomitant]
     Indication: BRONCHIAL CARCINOMA
     Dosage: UNK
     Dates: start: 20100801, end: 20100901
  5. SPECIAFOLDINE [Concomitant]
  6. CARBOPLATIN [Concomitant]
     Indication: BRONCHIAL CARCINOMA
     Dosage: UNK
     Dates: start: 20101001, end: 20101101
  7. LEVOTHYROXINE SODIUM [Concomitant]
     Dosage: 100 UG, UNK
  8. ASPEGIC 325 [Concomitant]
     Dosage: 100 MG, UNK

REACTIONS (6)
  - THYROIDECTOMY [None]
  - STRESS CARDIOMYOPATHY [None]
  - MYOCARDIAL INFARCTION [None]
  - ARTERIOSCLEROSIS CORONARY ARTERY [None]
  - AKINESIA [None]
  - PERICARDIAL EFFUSION [None]
